FAERS Safety Report 7287220-6 (Version None)
Quarter: 2011Q1

REPORT INFORMATION
  Report Type: 
  Country: None (occurrence: None)
  Receive Date: 20110125
  Receipt Date: 20110112
  Transmission Date: 20110831
  Serious: Yes (Hospitalization)
  Sender: FDA-Public Use
  Company Number: 025394

PATIENT
  Sex: Male

DRUGS (1)
  1. CIMZIA [Suspect]
     Indication: CROHN'S DISEASE
     Dosage: SUBCUTANEOUS
     Route: 058
     Dates: start: 20101210

REACTIONS (10)
  - VISION BLURRED [None]
  - BACK DISORDER [None]
  - DIARRHOEA [None]
  - MUSCLE SPASMS [None]
  - DEHYDRATION [None]
  - NAUSEA [None]
  - DIZZINESS [None]
  - INSOMNIA [None]
  - FAECAL INCONTINENCE [None]
  - FREQUENT BOWEL MOVEMENTS [None]
